FAERS Safety Report 4961825-7 (Version None)
Quarter: 2006Q2

REPORT INFORMATION
  Report Type: 
  Country: None (occurrence: None)
  Receive Date: 20060404
  Receipt Date: 20060221
  Transmission Date: 20061013
  Serious: Yes (Other)
  Sender: FDA-Public Use
  Company Number: JP-JPN-A200600698

PATIENT
  Age: 39 Year
  Sex: Female

DRUGS (10)
  1. PAXIL [Suspect]
     Indication: BORDERLINE PERSONALITY DISORDER
     Dosage: 2TAB PER DAY
     Route: 048
  2. BENZALIN [Suspect]
     Indication: DRUG USE FOR UNKNOWN INDICATION
     Dosage: 2TAB PER DAY
     Route: 048
  3. LEVOTOMIN [Suspect]
     Indication: DRUG USE FOR UNKNOWN INDICATION
     Dosage: 1TAB PER DAY
     Route: 048
  4. VEGETAMIN A [Suspect]
     Indication: DRUG USE FOR UNKNOWN INDICATION
     Route: 048
  5. SEROQUEL [Suspect]
     Indication: DRUG USE FOR UNKNOWN INDICATION
     Route: 048
  6. SENIRAN [Concomitant]
     Indication: DRUG USE FOR UNKNOWN INDICATION
     Dosage: 3TAB PER DAY
     Route: 048
  7. DIHYDROERGOTAMINE MESYLATE [Concomitant]
     Dosage: 3TAB PER DAY
     Route: 048
  8. FORSENID [Concomitant]
     Dosage: 4TAB PER DAY
     Route: 048
  9. LAXOBERON [Concomitant]
     Dosage: 10MG PER DAY
     Route: 048
  10. ALOSENN [Concomitant]
     Dosage: 1G PER DAY
     Route: 048

REACTIONS (5)
  - COORDINATION ABNORMAL [None]
  - DYSKINESIA [None]
  - EXTRAPYRAMIDAL DISORDER [None]
  - ILLUSION [None]
  - MOVEMENT DISORDER [None]
